FAERS Safety Report 17222349 (Version 1)
Quarter: 2020Q1

REPORT INFORMATION
  Report Type: Spontaneous
  Country: US (occurrence: US)
  Receive Date: 20191231
  Receipt Date: 20191231
  Transmission Date: 20200409
  Serious: Yes (Hospitalization)
  Sender: FDA-Public Use
  Company Number: None

PATIENT
  Age: 44 Year
  Sex: Female

DRUGS (7)
  1. NYSTATIN SUS 100000 [Concomitant]
  2. ASMANEX HFA AER 200 MCG [Concomitant]
  3. FLUCONAZOLE TAB 150 MG [Concomitant]
  4. LEVOFLOXACIN TAB 500 MG [Concomitant]
  5. METRONIDAZOLE TAB 500 MG [Concomitant]
  6. CAPECITABINE. [Suspect]
     Active Substance: CAPECITABINE
     Indication: BREAST CANCER
     Route: 048
     Dates: start: 20190925
  7. ENOXAPARIN INJ 100 MG/ML [Concomitant]

REACTIONS (1)
  - Hospitalisation [None]

NARRATIVE: CASE EVENT DATE: 20191230
